FAERS Safety Report 12881856 (Version 4)
Quarter: 2020Q3

REPORT INFORMATION
  Report Type: Spontaneous
  Country: US (occurrence: US)
  Receive Date: 20161025
  Receipt Date: 20200713
  Transmission Date: 20201102
  Serious: Yes (Other)
  Sender: FDA-Public Use
  Company Number: US-JNJFOC-20160902759

PATIENT
  Sex: Male

DRUGS (2)
  1. RISPERIDONE. [Suspect]
     Active Substance: RISPERIDONE
     Indication: PRODUCT USED FOR UNKNOWN INDICATION
     Route: 048
     Dates: start: 1990, end: 1994
  2. RISPERDAL [Suspect]
     Active Substance: RISPERIDONE
     Indication: BIPOLAR DISORDER
     Dosage: 1 DOSE
     Route: 048
     Dates: start: 1990, end: 1998

REACTIONS (4)
  - Sexual dysfunction [Unknown]
  - Gynaecomastia [Unknown]
  - Emotional distress [Unknown]
  - Weight increased [Unknown]

NARRATIVE: CASE EVENT DATE: 1990
